FAERS Safety Report 22700394 (Version 7)
Quarter: 2023Q4

REPORT INFORMATION
  Report Type: Spontaneous
  Country: US (occurrence: US)
  Receive Date: 20230713
  Receipt Date: 20231103
  Transmission Date: 20240110
  Serious: Yes (Other)
  Sender: FDA-Public Use
  Company Number: US-Blueprint Medicines Corporation-SP-US-2023-001085

PATIENT
  Age: 42 Year
  Sex: Female

DRUGS (3)
  1. AYVAKIT [Suspect]
     Active Substance: AVAPRITINIB
     Indication: Systemic mastocytosis
     Route: 065
     Dates: start: 20230708
  2. AYVAKIT [Suspect]
     Active Substance: AVAPRITINIB
     Route: 065
     Dates: start: 20230707
  3. MELATONIN [Suspect]
     Active Substance: MELATONIN
     Indication: Insomnia
     Route: 065

REACTIONS (45)
  - Haemorrhage [Unknown]
  - Pancreatitis [Unknown]
  - Gastritis [Unknown]
  - Hepatic enzyme increased [Unknown]
  - Joint swelling [Unknown]
  - Arthralgia [Unknown]
  - Peripheral swelling [Unknown]
  - Defaecation disorder [Unknown]
  - Restlessness [Unknown]
  - Nausea [Recovered/Resolved]
  - Hypotension [Unknown]
  - Heart rate decreased [Unknown]
  - Depressed mood [Unknown]
  - Chest pain [Unknown]
  - Tension [Unknown]
  - Swelling [Unknown]
  - Blood potassium decreased [Unknown]
  - Blood calcium decreased [Unknown]
  - Periorbital swelling [Unknown]
  - Blepharospasm [Unknown]
  - Contusion [Unknown]
  - Fatigue [Unknown]
  - Insomnia [Unknown]
  - Pain [Not Recovered/Not Resolved]
  - Headache [Unknown]
  - Urticaria [Not Recovered/Not Resolved]
  - Irregular sleep phase [Unknown]
  - Rash pruritic [Unknown]
  - Rash erythematous [Unknown]
  - Pain in extremity [Unknown]
  - Rash macular [Recovering/Resolving]
  - Migraine [Unknown]
  - Rash papular [Unknown]
  - Gastrointestinal disorder [Not Recovered/Not Resolved]
  - Lethargy [Unknown]
  - Feeling abnormal [Unknown]
  - Abdominal pain upper [Unknown]
  - Rash [Recovering/Resolving]
  - Discharge [Unknown]
  - Abdominal distension [Unknown]
  - Carpal tunnel syndrome [Unknown]
  - Condition aggravated [Unknown]
  - Face oedema [Unknown]
  - Discomfort [Unknown]
  - Drug ineffective [Unknown]

NARRATIVE: CASE EVENT DATE: 20231005
